FAERS Safety Report 23035537 (Version 2)
Quarter: 2023Q4

REPORT INFORMATION
  Report Type: Spontaneous
  Country: US (occurrence: US)
  Receive Date: 20231006
  Receipt Date: 20231006
  Transmission Date: 20240109
  Serious: Yes (Other)
  Sender: FDA-Public Use
  Company Number: US-SANOFI-01783729

PATIENT
  Sex: Male

DRUGS (1)
  1. CAMPATH [Suspect]
     Active Substance: ALEMTUZUMAB
     Indication: T-cell prolymphocytic leukaemia
     Dosage: UNK
     Route: 065

REACTIONS (1)
  - Leukaemia recurrent [Unknown]

NARRATIVE: CASE EVENT DATE: 20230801
